FAERS Safety Report 5035318-5 (Version None)
Quarter: 2006Q2

REPORT INFORMATION
  Report Type: 
  Country: None (occurrence: None)
  Receive Date: 20060519
  Receipt Date: 20060412
  Transmission Date: 20061013
  Serious: No
  Sender: FDA-Public Use
  Company Number: TPA2006A00365

PATIENT
  Age: 54 Year
  Sex: Female
  Weight: 68.0396 kg

DRUGS (1)
  1. ROZEREM [Suspect]
     Indication: INSOMNIA
     Dosage: 8 MG, ONCE, PER ORAL
     Route: 048
     Dates: start: 20060301

REACTIONS (5)
  - AGITATION [None]
  - ANXIETY [None]
  - CONDITION AGGRAVATED [None]
  - MIDDLE INSOMNIA [None]
  - POOR QUALITY SLEEP [None]
